FAERS Safety Report 7656623-X (Version None)
Quarter: 2011Q3

REPORT INFORMATION
  Report Type: 
  Country: None (occurrence: None)
  Receive Date: 20110804
  Receipt Date: 20110722
  Transmission Date: 20111222
  Serious: Yes (Hospitalization)
  Sender: FDA-Public Use
  Company Number: US-SANOFI-AVENTIS-2011SA048421

PATIENT
  Age: 67 Year
  Sex: Male
  Weight: 83 kg

DRUGS (7)
  1. NIFEDIPINE [Concomitant]
     Route: 065
  2. DRONEDARONE HCL [Suspect]
     Indication: ATRIAL FIBRILLATION
     Route: 048
     Dates: start: 20110310
  3. LISINOPRIL [Concomitant]
     Route: 065
  4. METOPROLOL TARTRATE [Concomitant]
     Route: 065
  5. ASPIRIN [Concomitant]
     Route: 065
  6. PRAVASTATIN [Concomitant]
     Route: 065
  7. WARFARIN [Concomitant]
     Route: 065

REACTIONS (1)
  - CARDIAC OPERATION [None]
